FAERS Safety Report 23704257 (Version 3)
Quarter: 2024Q2

REPORT INFORMATION
  Report Type: Spontaneous
  Country: BR (occurrence: BR)
  Receive Date: 20240404
  Receipt Date: 20240531
  Transmission Date: 20240716
  Serious: Yes (Hospitalization, Other)
  Sender: FDA-Public Use
  Company Number: BR-SUN PHARMACEUTICAL INDUSTRIES LTD-2024R1-439180

PATIENT
  Age: 35 Year
  Sex: Male

DRUGS (1)
  1. CLOZAPINE [Suspect]
     Active Substance: CLOZAPINE
     Indication: Schizophrenia
     Dosage: UNK UNK, DAILY (UP TO 400 MG)
     Route: 065

REACTIONS (2)
  - Anaemia [Recovered/Resolved]
  - Aplasia pure red cell [Recovered/Resolved]
